FAERS Safety Report 9143581 (Version 1)
Quarter: 2013Q1

REPORT INFORMATION
  Report Type: Spontaneous
  Country: AU (occurrence: AU)
  Receive Date: 20130306
  Receipt Date: 20130306
  Transmission Date: 20140127
  Serious: Yes (Disabling)
  Sender: FDA-Public Use
  Company Number: AU-ASTRAZENECA-2013SE12541

PATIENT
  Age: 75 Year
  Sex: Female

DRUGS (1)
  1. CRESTOR [Suspect]
     Indication: METABOLIC DISORDER
     Route: 048
     Dates: start: 20121220, end: 20130108

REACTIONS (3)
  - Visual impairment [Recovering/Resolving]
  - Vision blurred [Recovering/Resolving]
  - Visual acuity reduced [Recovering/Resolving]
